FAERS Safety Report 17854928 (Version 5)
Quarter: 2021Q4

REPORT INFORMATION
  Report Type: Spontaneous
  Country: US (occurrence: US)
  Receive Date: 20200603
  Receipt Date: 20211001
  Transmission Date: 20220303
  Serious: Yes (Other)
  Sender: FDA-Public Use
  Company Number: US-PFIZER INC-2020215604

PATIENT
  Age: 84 Year
  Sex: Female

DRUGS (3)
  1. IBRANCE [Suspect]
     Active Substance: PALBOCICLIB
     Indication: Breast cancer female
     Dosage: 125 MG
  2. IBRANCE [Suspect]
     Active Substance: PALBOCICLIB
     Dosage: 75 MG
  3. FULVESTRANT [Concomitant]
     Active Substance: FULVESTRANT
     Dosage: 25 MG, MONTHLY

REACTIONS (11)
  - White blood cell count decreased [Unknown]
  - Chest injury [Unknown]
  - Illness [Unknown]
  - Diarrhoea [Unknown]
  - Vomiting [Unknown]
  - Fall [Unknown]
  - Dyspnoea [Unknown]
  - Fatigue [Unknown]
  - Asthenia [Unknown]
  - Decreased appetite [Unknown]
  - Weight decreased [Unknown]
